FAERS Safety Report 8795810 (Version 1)
Quarter: 2012Q4

REPORT INFORMATION
  Report Type: 
  Country: US (occurrence: US)
  Receive Date: 20120919
  Receipt Date: 20120919
  Transmission Date: 20130627
  Serious: Yes (Hospitalization)
  Sender: FDA-Public Use
  Company Number: US-UCBSA-066027

PATIENT
  Age: 33 Year
  Sex: Female
  Weight: 81.6 kg

DRUGS (3)
  1. CIMZIA [Suspect]
     Indication: RHEUMATOID ARTHRITIS
     Dates: start: 201108
  2. CIMZIA [Suspect]
     Indication: CROHN^S DISEASE
     Dates: start: 201108
  3. COUMADIN [Concomitant]
     Indication: PROTEIN C DEFICIENCY
     Dosage: 10 MG ALT WITH 7.5 MG

REACTIONS (5)
  - Laceration [Recovered/Resolved]
  - Haematoma [Recovered/Resolved]
  - Haemorrhage [Recovered/Resolved]
  - Fall [Recovered/Resolved]
  - Product quality issue [Unknown]
